FAERS Safety Report 14999215 (Version 1)
Quarter: 2018Q2

REPORT INFORMATION
  Report Type: Spontaneous
  Country: IT (occurrence: IT)
  Receive Date: 20180612
  Receipt Date: 20180612
  Transmission Date: 20180711
  Serious: Yes (Death)
  Sender: FDA-Public Use
  Company Number: IT-TEVA-2018-IT-904259

PATIENT
  Age: 78 Year
  Sex: Female

DRUGS (1)
  1. CYCLOSPORINE A [Suspect]
     Active Substance: CYCLOSPORINE
     Dosage: 5 MG/KG DAILY;
     Route: 065

REACTIONS (2)
  - Condition aggravated [Fatal]
  - Mycosis fungoides [Fatal]
